FAERS Safety Report 9334468 (Version 1)
Quarter: 2013Q2

REPORT INFORMATION
  Report Type: Spontaneous
  Country: US (occurrence: US)
  Receive Date: 20130606
  Receipt Date: 20130606
  Transmission Date: 20140414
  Serious: No
  Sender: FDA-Public Use
  Company Number: US-AMGEN-USASP2013024268

PATIENT
  Age: 70 Year
  Sex: Female

DRUGS (7)
  1. PROLIA [Suspect]
     Indication: OSTEOPOROSIS POSTMENOPAUSAL
     Dosage: UNK
     Dates: start: 2011
  2. TRAMADOL [Concomitant]
     Dosage: 50 MG, Q6H
  3. LORAZEPAM [Concomitant]
     Indication: SLEEP DISORDER
     Dosage: 1 MG, QHS
  4. CLONAZEPAM [Concomitant]
     Indication: SLEEP DISORDER
     Dosage: 0.5 MG, AS NECESSARY
  5. RANITIDINE [Concomitant]
     Dosage: 150 MG, QHS
  6. CALCIUM WITH VITAMIN D             /00944201/ [Concomitant]
     Indication: SUPPLEMENTATION THERAPY
     Dosage: 1500 MG, QD
  7. OCUVITE                            /01053801/ [Concomitant]
     Dosage: .005 %, QHS
     Route: 047

REACTIONS (2)
  - Supraventricular tachycardia [Unknown]
  - Tooth disorder [Unknown]
